FAERS Safety Report 8417394 (Version 18)
Quarter: 2014Q3

REPORT INFORMATION
  Report Type: Report from Study
  Country: JP (occurrence: JP)
  Receive Date: 20120220
  Receipt Date: 20140904
  Transmission Date: 20150326
  Serious: Yes (Hospitalization)
  Sender: FDA-Public Use
  Company Number: JP-ROCHE-1021736

PATIENT
  Age: 36 Year
  Sex: Female
  Weight: 53 kg

DRUGS (23)
  1. PREDNISOLONE ACETATE/PREDNISOLONE SODIUM PHOSPHATE [Concomitant]
     Indication: NEUROMYELITIS OPTICA
     Route: 048
     Dates: start: 2000
  2. LOXOPROFEN SODIUM [Concomitant]
     Active Substance: LOXOPROFEN SODIUM
     Route: 048
  3. BIOFERMIN R [Concomitant]
     Active Substance: BACILLUS SUBTILIS\LACTOBACILLUS ACIDOPHILUS\STREPTOCOCCUS FAECAIS
     Indication: GASTROINTESTINAL DISORDER
     Route: 048
  4. BAKTAR [Concomitant]
     Active Substance: SULFAMETHOXAZOLE\TRIMETHOPRIM
     Indication: GASTROINTESTINAL DISORDER
     Route: 048
     Dates: start: 20110131
  5. SULFAMETHOXAZOLE AND TRIMETHOPRIM [Concomitant]
     Active Substance: SULFAMETHOXAZOLE\TRIMETHOPRIM
     Indication: INFECTION PROPHYLAXIS
     Route: 048
  6. TOCILIZUMAB [Suspect]
     Active Substance: TOCILIZUMAB
     Indication: NEUROMYELITIS OPTICA
     Dosage: 400-424MG
     Route: 041
     Dates: start: 20120113
  7. TOCILIZUMAB [Suspect]
     Active Substance: TOCILIZUMAB
     Route: 041
     Dates: start: 20131011, end: 20131011
  8. AZATHIOPRINE. [Concomitant]
     Active Substance: AZATHIOPRINE
     Indication: NEUROMYELITIS OPTICA
     Route: 048
     Dates: start: 201002
  9. FAMOTIDINE. [Concomitant]
     Active Substance: FAMOTIDINE
     Indication: PROPHYLAXIS
     Route: 048
  10. TRIMETHOPRIM. [Concomitant]
     Active Substance: TRIMETHOPRIM
     Indication: INFECTION PROPHYLAXIS
     Route: 048
  11. GABAPEN [Concomitant]
     Active Substance: GABAPENTIN
     Indication: PAIN
     Route: 048
  12. BIOFERMIN R [Concomitant]
     Active Substance: BACILLUS SUBTILIS\LACTOBACILLUS ACIDOPHILUS\STREPTOCOCCUS FAECAIS
     Dosage: DOSAGE IS UNCERTAIN.
     Route: 048
  13. AZANIN [Concomitant]
     Active Substance: AZATHIOPRINE
  14. GABAPEN [Concomitant]
     Active Substance: GABAPENTIN
     Indication: PAIN
     Route: 048
  15. EXCEGRAN [Concomitant]
     Active Substance: ZONISAMIDE
     Indication: TREMOR
     Route: 048
  16. TOCILIZUMAB [Suspect]
     Active Substance: TOCILIZUMAB
     Indication: NEUROMYELITIS OPTICA
     Dosage: 400-424MG
     Route: 041
     Dates: start: 20111102, end: 20111202
  17. TOCILIZUMAB [Suspect]
     Active Substance: TOCILIZUMAB
     Indication: OFF LABEL USE
     Route: 041
     Dates: start: 20130823, end: 20130823
  18. BONALON [Concomitant]
     Active Substance: ALENDRONATE SODIUM
     Indication: PROPHYLAXIS
     Route: 048
  19. PREDNISOLONE ACETATE/PREDNISOLONE SODIUM PHOSPHATE [Concomitant]
     Indication: NEUROMYELITIS OPTICA
     Dosage: IT DECREASES GRADUALLY FROM 13MG TO 6MG.
     Route: 048
  20. PREDNISOLONE ACETATE/PREDNISOLONE SODIUM PHOSPHATE [Concomitant]
     Indication: NEUROMYELITIS OPTICA
     Route: 048
     Dates: start: 201111, end: 201204
  21. AZATHIOPRINE. [Concomitant]
     Active Substance: AZATHIOPRINE
     Indication: NEUROMYELITIS OPTICA
     Route: 048
  22. SENNOSIDE [Concomitant]
     Active Substance: SENNOSIDES
     Indication: CONSTIPATION
     Route: 048
  23. TOCILIZUMAB [Suspect]
     Active Substance: TOCILIZUMAB
     Indication: NEUROMYELITIS OPTICA
     Dosage: 400-424MG
     Route: 041
     Dates: start: 20121024

REACTIONS (13)
  - Lymphocyte count decreased [Unknown]
  - Blood pressure decreased [Not Recovered/Not Resolved]
  - Respiratory tract infection [Unknown]
  - Gait disturbance [Recovered/Resolved]
  - Gastroenteritis norovirus [Recovering/Resolving]
  - Paraesthesia [Recovered/Resolved]
  - Lymphopenia [Unknown]
  - Enterocolitis [Unknown]
  - Leukopenia [Unknown]
  - Off label use [Unknown]
  - Upper respiratory tract inflammation [Recovering/Resolving]
  - Pyelonephritis acute [Recovered/Resolved]
  - Upper respiratory tract inflammation [Unknown]

NARRATIVE: CASE EVENT DATE: 201112
